FAERS Safety Report 19113386 (Version 1)
Quarter: 2021Q2

REPORT INFORMATION
  Report Type: Spontaneous
  Country: US (occurrence: US)
  Receive Date: 20210409
  Receipt Date: 20210409
  Transmission Date: 20210717
  Serious: No
  Sender: FDA-Public Use
  Company Number: US-ALLERGAN-2027086US

PATIENT
  Age: 18 Year
  Sex: Female
  Weight: 122 kg

DRUGS (1)
  1. LILETTA [Suspect]
     Active Substance: LEVONORGESTREL
     Indication: PRODUCT USED FOR UNKNOWN INDICATION
     Dosage: 52 MG, SINGLE
     Route: 015
     Dates: start: 20200714, end: 20200714

REACTIONS (1)
  - Procedural pain [Recovered/Resolved]

NARRATIVE: CASE EVENT DATE: 20200714
